FAERS Safety Report 5689338-8 (Version None)
Quarter: 2008Q1

REPORT INFORMATION
  Report Type: 
  Country: None (occurrence: None)
  Receive Date: 20080331
  Receipt Date: 20080319
  Transmission Date: 20080703
  Serious: Yes (Other)
  Sender: FDA-Public Use
  Company Number: BR-PFIZER INC-2008025632

PATIENT
  Sex: Female
  Weight: 70 kg

DRUGS (2)
  1. DEPO-PROVERA SUSPENSION/INJ [Suspect]
     Indication: CONTRACEPTION
     Route: 030
     Dates: start: 20071212, end: 20071212
  2. DEPO-PROVERA SUSPENSION/INJ [Suspect]
     Route: 030
     Dates: start: 20080111, end: 20080111

REACTIONS (3)
  - ABORTION SPONTANEOUS [None]
  - INCORRECT DOSE ADMINISTERED [None]
  - UNINTENDED PREGNANCY [None]
